FAERS Safety Report 18026238 (Version 1)
Quarter: 2020Q3

REPORT INFORMATION
  Report Type: Spontaneous
  Country: US (occurrence: US)
  Receive Date: 20200715
  Receipt Date: 20200715
  Transmission Date: 20201103
  Serious: No
  Sender: FDA-Public Use
  Company Number: US-NEPHRON STERILE COMPOUNDING CENTER-2087392

PATIENT
  Age: 24 Year
  Sex: Female
  Weight: 85.91 kg

DRUGS (5)
  1. EPHEDRINE. [Concomitant]
     Active Substance: EPHEDRINE
     Route: 042
     Dates: start: 20200707, end: 20200707
  2. LACTATED RINGERS SOLUTION [Concomitant]
     Active Substance: CALCIUM CHLORIDE\POTASSIUM CHLORIDE\SODIUM CHLORIDE\SODIUM LACTATE
     Route: 042
     Dates: start: 20200707, end: 20200707
  3. OXYTOCIN. [Concomitant]
     Active Substance: OXYTOCIN
     Route: 042
     Dates: start: 20200707, end: 20200707
  4. ONDANSETRON [Concomitant]
     Active Substance: ONDANSETRON
     Route: 042
     Dates: start: 20200707, end: 20200707
  5. FENTANYL CITRATE 400MCG/ ROPIVACAINE HYDROCHLORIDE 0.1% 200MG IN 0.9% [Suspect]
     Active Substance: FENTANYL\ROPIVACAINE
     Indication: DELIVERY
     Route: 008
     Dates: start: 20200707, end: 20200707

REACTIONS (1)
  - Drug ineffective [Recovered/Resolved]

NARRATIVE: CASE EVENT DATE: 20200707
